FAERS Safety Report 21416382 (Version 4)
Quarter: 2022Q4

REPORT INFORMATION
  Report Type: Report from Study
  Country: BR (occurrence: BR)
  Receive Date: 20221006
  Receipt Date: 20221219
  Transmission Date: 20230112
  Serious: Yes (Hospitalization, Other)
  Sender: FDA-Public Use
  Company Number: BR-JNJFOC-20220819043

PATIENT
  Age: 17 Year
  Sex: Male
  Weight: 47 kg

DRUGS (13)
  1. INFLIXIMAB [Suspect]
     Active Substance: INFLIXIMAB
     Indication: Crohn^s disease
     Route: 041
     Dates: start: 20220524
  2. INFLIXIMAB [Suspect]
     Active Substance: INFLIXIMAB
     Route: 041
     Dates: start: 20220607
  3. INFLIXIMAB [Suspect]
     Active Substance: INFLIXIMAB
     Route: 041
     Dates: start: 20220705
  4. INFLIXIMAB [Suspect]
     Active Substance: INFLIXIMAB
     Route: 041
  5. INFLIXIMAB [Suspect]
     Active Substance: INFLIXIMAB
     Route: 041
  6. INFLIXIMAB [Suspect]
     Active Substance: INFLIXIMAB
     Route: 041
     Dates: start: 20220424
  7. INFLIXIMAB [Suspect]
     Active Substance: INFLIXIMAB
     Route: 041
  8. REMICADE [Suspect]
     Active Substance: INFLIXIMAB
     Indication: Crohn^s disease
     Dosage: 5 DILUTED VIALS UP TO 250ML OF SALINE 0.9%. ADMINISTER IT IN 2H IN WEEKS 14 AND 22
     Route: 041
     Dates: start: 20220524, end: 20220705
  9. REMICADE [Suspect]
     Active Substance: INFLIXIMAB
     Route: 041
  10. REMICADE [Suspect]
     Active Substance: INFLIXIMAB
     Dosage: 2-5 VIALS
     Route: 041
  11. IMURAN [Concomitant]
     Active Substance: AZATHIOPRINE
     Indication: Product used for unknown indication
     Route: 065
  12. TRAMADOL [Concomitant]
     Active Substance: TRAMADOL
  13. AMIODARONE [Concomitant]
     Active Substance: AMIODARONE

REACTIONS (18)
  - Retroperitoneal abscess [Unknown]
  - Urinary tract infection [Recovered/Resolved]
  - Nephrolithiasis [Unknown]
  - Renal cyst [Unknown]
  - Malaise [Unknown]
  - Weight decreased [Unknown]
  - Abdominal distension [Unknown]
  - Peripheral swelling [Unknown]
  - Swelling [Unknown]
  - Escherichia urinary tract infection [Unknown]
  - Hypersensitivity [Unknown]
  - Drug level below therapeutic [Unknown]
  - Drug specific antibody present [Unknown]
  - Treatment failure [Unknown]
  - Decreased activity [Unknown]
  - Anal fistula [Unknown]
  - Product dose omission issue [Unknown]
  - Off label use [Unknown]

NARRATIVE: CASE EVENT DATE: 20220101
